FAERS Safety Report 15221650 (Version 1)
Quarter: 2018Q3

REPORT INFORMATION
  Report Type: Spontaneous
  Country: US (occurrence: US)
  Receive Date: 20180705
  Receipt Date: 20180705
  Transmission Date: 20181010
  Serious: Yes (Hospitalization, Disabling, Other)
  Sender: FDA-Public Use
  Company Number: None

PATIENT
  Age: 35 Year
  Sex: Male
  Weight: 85.5 kg

DRUGS (8)
  1. CLONAZEPAM. [Suspect]
     Active Substance: CLONAZEPAM
  2. DHA [Suspect]
     Active Substance: DIETARY SUPPLEMENT
  3. PROPANOL [Concomitant]
     Active Substance: PROPRANOLOL HYDROCHLORIDE
  4. I?THEANINE [Concomitant]
  5. LEXAPRO [Concomitant]
     Active Substance: ESCITALOPRAM OXALATE
  6. KIEFER PROBIOTOCS [Concomitant]
  7. XANAX [Suspect]
     Active Substance: ALPRAZOLAM
     Indication: ANXIETY
     Dosage: ?          QUANTITY:90 TABLET(S);?
     Route: 048
     Dates: start: 20161003, end: 20180604
  8. MAGNESIUM [Concomitant]
     Active Substance: MAGNESIUM

REACTIONS (12)
  - Depression [None]
  - Fall [None]
  - Upper limb fracture [None]
  - Quality of life decreased [None]
  - Suicidal ideation [None]
  - Therapy change [None]
  - Withdrawal syndrome [None]
  - Seizure [None]
  - Impaired work ability [None]
  - Drug tolerance [None]
  - Suicide attempt [None]
  - Aggression [None]

NARRATIVE: CASE EVENT DATE: 20180511
